FAERS Safety Report 9558339 (Version 6)
Quarter: 2016Q1

REPORT INFORMATION
  Report Type: Spontaneous
  Country: US (occurrence: US)
  Receive Date: 20130926
  Receipt Date: 20160114
  Transmission Date: 20160526
  Serious: Yes (Other)
  Sender: FDA-Public Use
  Company Number: US-PFIZER INC-2013276844

PATIENT
  Age: 58 Year
  Sex: Female
  Weight: 58 kg

DRUGS (3)
  1. LYRICA [Suspect]
     Active Substance: PREGABALIN
     Dosage: 75 MG, 1X/DAY
  2. ULTRAM [Concomitant]
     Active Substance: TRAMADOL HYDROCHLORIDE
     Dosage: 50 MG, EVERY 4 TO 6 HOURS AS NEEDED
  3. LYRICA [Suspect]
     Active Substance: PREGABALIN
     Indication: RHEUMATOID ARTHRITIS
     Dosage: 75 MG, 3X/DAY

REACTIONS (11)
  - Pain [Unknown]
  - Rheumatoid arthritis [Unknown]
  - Hypoaesthesia [Unknown]
  - Drug effect incomplete [Unknown]
  - Condition aggravated [Unknown]
  - Abasia [Unknown]
  - Hepatic enzyme increased [Unknown]
  - Grip strength decreased [Unknown]
  - Malaise [Unknown]
  - Sinusitis [Unknown]
  - Breast cancer [Unknown]
